FAERS Safety Report 15657976 (Version 1)
Quarter: 2018Q4

REPORT INFORMATION
  Report Type: Spontaneous
  Country: US (occurrence: US)
  Receive Date: 20181126
  Receipt Date: 20181126
  Transmission Date: 20190205
  Serious: Yes (Hospitalization)
  Sender: FDA-Public Use
  Company Number: None

PATIENT
  Age: 84 Year
  Sex: Female

DRUGS (1)
  1. XARELTO [Suspect]
     Active Substance: RIVAROXABAN
     Route: 048
     Dates: start: 20181117, end: 20181119

REACTIONS (4)
  - Gastroenteritis viral [None]
  - Dehydration [None]
  - Blood sodium decreased [None]
  - Influenza like illness [None]

NARRATIVE: CASE EVENT DATE: 20181119
